FAERS Safety Report 7571919-8 (Version None)
Quarter: 2011Q2

REPORT INFORMATION
  Report Type: 
  Country: None (occurrence: None)
  Receive Date: 20110624
  Receipt Date: 20101129
  Transmission Date: 20111010
  Serious: No
  Sender: FDA-Public Use
  Company Number: A0896699A

PATIENT
  Age: 62 Year
  Sex: Female

DRUGS (1)
  1. VERAMYST [Suspect]
     Dosage: 4SPR PER DAY
     Route: 045
     Dates: start: 20101124, end: 20101124

REACTIONS (1)
  - HEADACHE [None]
